FAERS Safety Report 9939345 (Version 1)
Quarter: 2014Q1

REPORT INFORMATION
  Report Type: Report from Study
  Country: US (occurrence: US)
  Receive Date: 20140303
  Receipt Date: 20140303
  Transmission Date: 20141002
  Serious: No
  Sender: FDA-Public Use
  Company Number: US-ABBVIE-13P-163-1032977-00

PATIENT
  Age: 76 Year
  Sex: Female
  Weight: 67.65 kg

DRUGS (11)
  1. HUMIRA [Suspect]
     Indication: RHEUMATOID ARTHRITIS
     Dates: start: 2011
  2. METHOTREXATE [Concomitant]
     Indication: RHEUMATOID ARTHRITIS
  3. PRAVASTATIN [Concomitant]
     Indication: BLOOD CHOLESTEROL INCREASED
  4. SOTOLOL [Concomitant]
     Indication: HEART RATE IRREGULAR
  5. EFFEXOR [Concomitant]
     Indication: ANXIETY
  6. EFFEXOR [Concomitant]
     Indication: DEPRESSION
  7. LISINOPRIL [Concomitant]
     Indication: HYPERTENSION
  8. ALENDRONATE SODIUM [Concomitant]
     Indication: OSTEOPOROSIS
  9. FOLIC ACID [Concomitant]
     Indication: PRODUCT USED FOR UNKNOWN INDICATION
  10. CALCIUM [Concomitant]
     Indication: SUPPLEMENTATION THERAPY
  11. NONI JUICE [Concomitant]
     Indication: PRODUCT USED FOR UNKNOWN INDICATION

REACTIONS (4)
  - Arthralgia [Not Recovered/Not Resolved]
  - Influenza [Recovered/Resolved]
  - Device malfunction [Unknown]
  - Incorrect dose administered [Unknown]
